FAERS Safety Report 9224715 (Version 1)
Quarter: 2013Q2

REPORT INFORMATION
  Report Type: Spontaneous
  Country: FR (occurrence: FR)
  Receive Date: 20130411
  Receipt Date: 20130411
  Transmission Date: 20140414
  Serious: Yes (Hospitalization)
  Sender: FDA-Public Use
  Company Number: FR-PFIZER INC-2013112862

PATIENT
  Age: 81 Year
  Sex: Female

DRUGS (3)
  1. ORELOX [Suspect]
     Indication: OTITIS MEDIA ACUTE
     Dosage: UNK
     Route: 048
     Dates: start: 201302, end: 20130219
  2. PRADAXA [Suspect]
     Indication: ATRIAL FIBRILLATION
     Dosage: 110 MG, 2X/DAY
     Route: 048
     Dates: end: 20130221
  3. AUGMENTIN [Suspect]
     Indication: OTITIS MEDIA ACUTE
     Dosage: UNK
     Route: 048
     Dates: start: 20130209, end: 201302

REACTIONS (1)
  - Ear haemorrhage [Not Recovered/Not Resolved]
